FAERS Safety Report 11903458 (Version 2)
Quarter: 2016Q2

REPORT INFORMATION
  Report Type: Spontaneous
  Country: US (occurrence: US)
  Receive Date: 20160110
  Receipt Date: 20160427
  Transmission Date: 20160815
  Serious: No
  Sender: FDA-Public Use
  Company Number: GXBR2015US002679

PATIENT
  Sex: Female
  Weight: 30.3 kg

DRUGS (2)
  1. OMNITROPE [Suspect]
     Active Substance: SOMATROPIN
     Dosage: 1.4 MG, SIX DAYS A WEEK
     Route: 065
     Dates: start: 201509, end: 20151201
  2. OMNITROPE [Suspect]
     Active Substance: SOMATROPIN
     Indication: GROWTH RETARDATION
     Dosage: 1.3 MG, SIX DAYS A WEEK
     Route: 065
     Dates: start: 201407, end: 201508

REACTIONS (3)
  - Arthralgia [Unknown]
  - Incorrect dose administered [Unknown]
  - Drug administered in wrong device [Unknown]
